FAERS Safety Report 4999985-4 (Version None)
Quarter: 2006Q2

REPORT INFORMATION
  Report Type: 
  Country: None (occurrence: None)
  Receive Date: 20060501
  Receipt Date: 20060417
  Transmission Date: 20061013
  Serious: Yes (Other)
  Sender: FDA-Public Use
  Company Number: 2006052739

PATIENT
  Age: 64 Year
  Sex: Female

DRUGS (5)
  1. AZITHROMYCIN [Suspect]
     Indication: MYCOPLASMA INFECTION
     Dosage: 500 MG, ORAL
     Route: 048
     Dates: start: 20060412, end: 20060414
  2. CALONAL (PARACETAMOL) [Concomitant]
  3. ALL OTHER THERAPEUTIC PRODUCTS (ALL OTHER THERAPEUTIC PRODUCTS) [Concomitant]
  4. ISALON (ALDIOXA) [Concomitant]
  5. HOKUNALI  (TULOBUTEROLHYDROCHLORIDE) [Concomitant]

REACTIONS (2)
  - TACHYCARDIA [None]
  - VENTRICULAR EXTRASYSTOLES [None]
